FAERS Safety Report 25074869 (Version 1)
Quarter: 2025Q1

REPORT INFORMATION
  Report Type: Spontaneous
  Country: NL (occurrence: NL)
  Receive Date: 20250313
  Receipt Date: 20250313
  Transmission Date: 20250409
  Serious: Yes (Life-Threatening)
  Sender: ACCORD
  Company Number: None

PATIENT
  Age: 66 Year
  Sex: Female
  Weight: 85 kg

DRUGS (10)
  1. MITOMYCIN [Suspect]
     Active Substance: MITOMYCIN
     Indication: Bladder cancer
     Dosage: STRENGTH: 40MG, 1X PER WEEK BLADDER LAVAGE
     Dates: start: 20250203, end: 20250203
  2. Calci chew [Concomitant]
  3. COSOPT [Concomitant]
     Active Substance: DORZOLAMIDE HYDROCHLORIDE\TIMOLOL MALEATE
  4. FERROUS FUMARATE [Concomitant]
     Active Substance: FERROUS FUMARATE
  5. OMEPRAZOLE [Concomitant]
     Active Substance: OMEPRAZOLE
  6. MINERAL OIL EMULSION\PETROLATUM [Concomitant]
     Active Substance: MINERAL OIL EMULSION\PETROLATUM
  7. RIVAROXABAN [Concomitant]
     Active Substance: RIVAROXABAN
  8. SIMVASTATIN [Concomitant]
     Active Substance: SIMVASTATIN
  9. XALATAN [Concomitant]
     Active Substance: LATANOPROST
  10. ACETAMINOPHEN [Concomitant]
     Active Substance: ACETAMINOPHEN

REACTIONS (1)
  - Anaphylactic reaction [Recovered/Resolved]
